FAERS Safety Report 10186468 (Version 1)
Quarter: 2014Q2

REPORT INFORMATION
  Report Type: Spontaneous
  Country: US (occurrence: US)
  Receive Date: 20140521
  Receipt Date: 20140521
  Transmission Date: 20141212
  Serious: No
  Sender: FDA-Public Use
  Company Number: US-ASTRAZENECA-2013SE51489

PATIENT
  Age: 50 Year
  Sex: Female
  Weight: 66.2 kg

DRUGS (12)
  1. PULMICORT FLEXHALER [Suspect]
     Indication: CHRONIC OBSTRUCTIVE PULMONARY DISEASE
     Route: 055
     Dates: start: 20130708
  2. PULMICORT FLEXHALER [Suspect]
     Indication: ASTHMA
     Route: 055
     Dates: start: 20130708
  3. METFORMIN [Concomitant]
     Indication: BLOOD GLUCOSE INCREASED
     Route: 048
  4. CLONAZEPAM [Concomitant]
     Indication: ANXIETY
     Route: 048
  5. CLONAZEPAM [Concomitant]
     Indication: SLEEP DISORDER
     Route: 048
  6. CLONAZEPAM [Concomitant]
     Indication: ANXIETY
     Dosage: 1 MG AT NIGHT FOR SLEEP
     Route: 048
  7. CLONAZEPAM [Concomitant]
     Indication: SLEEP DISORDER
     Dosage: 1 MG AT NIGHT FOR SLEEP
     Route: 048
  8. CLARITIN [Concomitant]
     Indication: SINUS DISORDER
     Route: 048
     Dates: start: 201303
  9. NEURONTIN [Concomitant]
     Indication: NERVE ROOT INJURY THORACIC
     Route: 048
  10. PERCOCET [Concomitant]
     Indication: NECK DEFORMITY
     Dosage: 5/325 MG
     Route: 048
     Dates: start: 201303
  11. ALBUTEROL SULFATE [Concomitant]
     Dosage: 3.0 GM PRN
     Route: 055
  12. IPRATROPIUM BROMIDE [Concomitant]
     Dosage: 0.5 GM PRN
     Route: 055

REACTIONS (4)
  - Tremor [Unknown]
  - Blood glucose increased [Unknown]
  - Hypertension [Unknown]
  - Intentional product misuse [Unknown]
